FAERS Safety Report 24832363 (Version 9)
Quarter: 2025Q3

REPORT INFORMATION
  Report Type: Spontaneous
  Country: JP (occurrence: JP)
  Receive Date: 20250110
  Receipt Date: 20250926
  Transmission Date: 20251020
  Serious: Yes (Hospitalization, Other)
  Sender: APELLIS PHARMACEUTICALS
  Company Number: JP-BIOVITRUM-2024-JP-015490

PATIENT

DRUGS (2)
  1. EMPAVELI [Suspect]
     Active Substance: PEGCETACOPLAN
     Indication: Paroxysmal nocturnal haemoglobinuria
     Dosage: TWICE PER WEEK
     Route: 058
  2. EMPAVELI [Suspect]
     Active Substance: PEGCETACOPLAN
     Route: 058

REACTIONS (18)
  - Injection site erythema [Recovered/Resolved]
  - Haemorrhoids [Recovering/Resolving]
  - Injection site extravasation [Unknown]
  - Upper respiratory tract infection [Recovered/Resolved]
  - Decreased appetite [Recovering/Resolving]
  - Anaemia [Recovering/Resolving]
  - Product physical issue [Unknown]
  - Needle issue [Unknown]
  - Musculoskeletal chest pain [Unknown]
  - Pilonidal disease [Unknown]
  - Pain [Recovered/Resolved]
  - Myelofibrosis [Unknown]
  - Condition aggravated [Unknown]
  - Platelet count decreased [Not Recovered/Not Resolved]
  - Muscular weakness [Recovering/Resolving]
  - Injection site haemorrhage [Recovered/Resolved]
  - Internal haemorrhage [Not Recovered/Not Resolved]
  - Inflammation [Recovering/Resolving]

NARRATIVE: CASE EVENT DATE: 20241203
